FAERS Safety Report 7077981-3 (Version None)
Quarter: 2010Q4

REPORT INFORMATION
  Report Type: 
  Country: None (occurrence: None)
  Receive Date: 20101101
  Receipt Date: 20101018
  Transmission Date: 20110411
  Serious: Yes (Other)
  Sender: FDA-Public Use
  Company Number: US-AMGEN-USASP2010001310

PATIENT

DRUGS (2)
  1. FILGRASTIM [Suspect]
     Indication: CHEMOTHERAPY
     Dosage: 5 A?G/KG, AFTER CHEMO
     Route: 058
  2. PEGFILGRASTIM [Suspect]
     Indication: CHEMOTHERAPY
     Dosage: 6 MG, AFTER CHEMO
     Route: 058

REACTIONS (2)
  - BLAST CELLS PRESENT [None]
  - PANCYTOPENIA [None]
